FAERS Safety Report 4803060-9 (Version None)
Quarter: 2005Q4

REPORT INFORMATION
  Report Type: 
  Country: None (occurrence: None)
  Receive Date: 20051019
  Receipt Date: 20051014
  Transmission Date: 20060501
  Serious: Yes (Other)
  Sender: FDA-Public Use
  Company Number: JP-JPN-A20052466

PATIENT
  Age: 79 Year
  Sex: Female

DRUGS (1)
  1. MODACIN [Suspect]
     Route: 042

REACTIONS (2)
  - ACUTE GENERALISED EXANTHEMATOUS PUSTULOSIS [None]
  - DEPRESSED LEVEL OF CONSCIOUSNESS [None]
